FAERS Safety Report 4523269-1 (Version None)
Quarter: 2004Q4

REPORT INFORMATION
  Report Type: 
  Country: None (occurrence: None)
  Receive Date: 20041209
  Receipt Date: 20041209
  Transmission Date: 20050328
  Serious: Yes (Life-Threatening)
  Sender: FDA-Public Use
  Company Number: None

PATIENT
  Age: 64 Year
  Sex: Male
  Weight: 78.0187 kg

DRUGS (7)
  1. PLAVIX [Suspect]
     Indication: POSTOPERATIVE CARE
     Dosage: 75 MG ONCE DAILY - ORAL (047)
     Route: 048
     Dates: start: 20040923, end: 20041013
  2. PLAVIX [Suspect]
     Indication: STENT PLACEMENT
     Dosage: 75 MG ONCE DAILY - ORAL (047)
     Route: 048
     Dates: start: 20040923, end: 20041013
  3. ASPIRIN [Concomitant]
  4. METOPROLOL TARTRATE [Concomitant]
  5. LISINOPRIL [Concomitant]
  6. CARDURA [Concomitant]
  7. PROSCAR [Concomitant]

REACTIONS (2)
  - ANGIONEUROTIC OEDEMA [None]
  - SWELLING FACE [None]
